FAERS Safety Report 6045687-5 (Version None)
Quarter: 2009Q1

REPORT INFORMATION
  Report Type: 
  Country: None (occurrence: None)
  Receive Date: 20090121
  Receipt Date: 20090109
  Transmission Date: 20090719
  Serious: Yes (Other)
  Sender: FDA-Public Use
  Company Number: PT-PFIZER INC-2008076761

PATIENT

DRUGS (2)
  1. ZITHROMAX [Suspect]
     Route: 048
     Dates: start: 20080810, end: 20080810
  2. IBUPROFEN [Concomitant]
     Indication: PAIN
     Route: 048

REACTIONS (7)
  - DIARRHOEA [None]
  - DRY SKIN [None]
  - LIP DRY [None]
  - NAUSEA [None]
  - PRURITUS [None]
  - RASH GENERALISED [None]
  - VOMITING [None]
